FAERS Safety Report 5892950-4 (Version None)
Quarter: 2008Q3

REPORT INFORMATION
  Report Type: 
  Country: None (occurrence: None)
  Receive Date: 20080922
  Receipt Date: 20080922
  Transmission Date: 20090109
  Serious: Yes (Other)
  Sender: FDA-Public Use
  Company Number: None

PATIENT
  Age: 67 Year
  Sex: Female
  Weight: 68.0396 kg

DRUGS (3)
  1. LISINOPRIL [Suspect]
     Indication: HYPERTENSION
     Dosage: 10 MG 1 DLY PO, 8-10 YRS
     Route: 048
     Dates: start: 19980101, end: 20080724
  2. SODIUM PHOSPHATES [Suspect]
     Indication: COLONOSCOPY
     Dosage: 15CC X1 PO
     Route: 048
     Dates: start: 20080423, end: 20080424
  3. SODIUM PHOSPHATES [Suspect]
     Indication: PREOPERATIVE CARE
     Dosage: 15CC X1 PO
     Route: 048
     Dates: start: 20080423, end: 20080424

REACTIONS (10)
  - BALANCE DISORDER [None]
  - DIZZINESS [None]
  - DRUG INTOLERANCE [None]
  - FEELING ABNORMAL [None]
  - FEELING JITTERY [None]
  - HYPOTENSION [None]
  - INAPPROPRIATE SCHEDULE OF DRUG ADMINISTRATION [None]
  - MALAISE [None]
  - NAUSEA [None]
  - THINKING ABNORMAL [None]
